FAERS Safety Report 5612241-6 (Version None)
Quarter: 2008Q1

REPORT INFORMATION
  Report Type: 
  Country: None (occurrence: None)
  Receive Date: 20080131
  Receipt Date: 20080131
  Transmission Date: 20080703
  Serious: Yes (Other)
  Sender: FDA-Public Use
  Company Number: None

PATIENT
  Sex: Female

DRUGS (2)
  1. AZITHROMYCIN [Suspect]
     Indication: PNEUMONIA
     Dosage: 500MG X1 IV DRIP ONE DOSE
     Route: 041
     Dates: start: 20080129, end: 20080129
  2. DEXTROSE 5% [Suspect]
     Indication: MEDICATION DILUTION
     Dosage: 250ML X1 IV DRIP ONE DOSE
     Route: 041
     Dates: start: 20080129, end: 20080129

REACTIONS (2)
  - DYSPNOEA [None]
  - WHEEZING [None]
